FAERS Safety Report 9022646 (Version 2)
Quarter: 2013Q1

REPORT INFORMATION
  Report Type: Report from Study
  Country: ES (occurrence: ES)
  Receive Date: 20130120
  Receipt Date: 20130131
  Transmission Date: 20140127
  Serious: Yes (Hospitalization, Other)
  Sender: FDA-Public Use
  Company Number: ES-TEVA-381545USA

PATIENT
  Age: 80 None
  Sex: Female
  Weight: 47 kg

DRUGS (8)
  1. TREANDA [Suspect]
     Indication: PLASMA CELL MYELOMA
     Route: 042
     Dates: start: 20120504, end: 20121126
  2. TREANDA [Suspect]
     Dosage: REGIMEN #2
     Route: 042
  3. TREANDA [Suspect]
     Dosage: REGIMEN #3
  4. VELCADE [Suspect]
     Indication: PLASMA CELL MYELOMA
     Route: 042
     Dates: start: 20120504
  5. VELCADE [Suspect]
     Dosage: REGIMEN #2
     Route: 042
     Dates: end: 20121219
  6. PREDNISONE [Suspect]
     Indication: PLASMA CELL MYELOMA
     Dosage: REGIMEN #1
     Route: 048
     Dates: start: 20120504
  7. PREDNISONE [Suspect]
     Dosage: REGIMEN # 2
     Route: 048
  8. PREDNISONE [Suspect]
     Dosage: REGIMEN # 3

REACTIONS (1)
  - Gastrointestinal toxicity [Recovered/Resolved]
